FAERS Safety Report 9354618 (Version 1)
Quarter: 2013Q2

REPORT INFORMATION
  Report Type: Spontaneous
  Country: US (occurrence: US)
  Receive Date: 20130618
  Receipt Date: 20130618
  Transmission Date: 20140414
  Serious: No
  Sender: FDA-Public Use
  Company Number: US-US-EMD SERONO, INC.-7016119

PATIENT
  Age: 19 Year
  Sex: Female

DRUGS (2)
  1. REBIF [Suspect]
     Indication: PRODUCT USED FOR UNKNOWN INDICATION
     Route: 058
     Dates: start: 20091002
  2. PAXIL [Concomitant]
     Indication: DEPRESSION

REACTIONS (3)
  - VIIth nerve paralysis [Unknown]
  - Depressed mood [Not Recovered/Not Resolved]
  - Activities of daily living impaired [Not Recovered/Not Resolved]
